FAERS Safety Report 9716863 (Version 2)
Quarter: 2013Q4

REPORT INFORMATION
  Report Type: Report from Study
  Country: US (occurrence: US)
  Receive Date: 20131127
  Receipt Date: 20131202
  Transmission Date: 20140711
  Serious: Yes (Other)
  Sender: FDA-Public Use
  Company Number: US-ABBVIE-13P-163-1172928-00

PATIENT
  Age: 66 Year
  Sex: Female
  Weight: 136.2 kg

DRUGS (7)
  1. HUMIRA [Suspect]
     Indication: RHEUMATOID ARTHRITIS
     Dates: start: 201305, end: 201307
  2. HUMIRA [Suspect]
     Dates: start: 201310
  3. SIMVASTATIN [Concomitant]
     Indication: PRODUCT USED FOR UNKNOWN INDICATION
  4. DOXAZOSIN [Concomitant]
     Indication: PRODUCT USED FOR UNKNOWN INDICATION
  5. FOLIC ACID [Concomitant]
     Indication: PRODUCT USED FOR UNKNOWN INDICATION
  6. PREDNISONE [Concomitant]
     Indication: PRODUCT USED FOR UNKNOWN INDICATION
  7. GLIPIZIDE [Concomitant]
     Indication: PRODUCT USED FOR UNKNOWN INDICATION

REACTIONS (5)
  - Joint dislocation [Not Recovered/Not Resolved]
  - Fall [Recovered/Resolved]
  - Upper limb fracture [Not Recovered/Not Resolved]
  - Head injury [Recovering/Resolving]
  - Laceration [Recovering/Resolving]
